FAERS Safety Report 9087028 (Version 1)
Quarter: 2013Q1

REPORT INFORMATION
  Report Type: Spontaneous
  Country: GB (occurrence: GB)
  Receive Date: 20130131
  Receipt Date: 20130131
  Transmission Date: 20140127
  Serious: Yes (Other)
  Sender: FDA-Public Use
  Company Number: GB-JNJFOC-20130113448

PATIENT
  Age: 32 Year
  Sex: Male

DRUGS (1)
  1. PHENYLEPHRINE HYDROCHLORIDE [Suspect]
     Indication: NASAL CONGESTION
     Route: 048
     Dates: start: 20130106, end: 20130106

REACTIONS (1)
  - Tachycardia [Unknown]
